FAERS Safety Report 15639815 (Version 1)
Quarter: 2018Q4

REPORT INFORMATION
  Report Type: Spontaneous
  Country: GB (occurrence: GB)
  Receive Date: 20181120
  Receipt Date: 20181120
  Transmission Date: 20190205
  Serious: Yes (Other)
  Sender: FDA-Public Use
  Company Number: PHHY2018GB156995

PATIENT
  Sex: Female

DRUGS (3)
  1. ALEMTUZUMAB [Suspect]
     Active Substance: ALEMTUZUMAB
     Indication: JUVENILE IDIOPATHIC ARTHRITIS
     Dosage: 0.2 MG/KG, QD (FROM DAYS 8 TO 4)
     Route: 065
  2. FLUDARABINE [Suspect]
     Active Substance: FLUDARABINE PHOSPHATE
     Indication: JUVENILE IDIOPATHIC ARTHRITIS
     Dosage: 30 MG/M2, QD (FROM DAYS 7 TO 3)
     Route: 065
  3. MELPHALAN. [Suspect]
     Active Substance: MELPHALAN
     Indication: JUVENILE IDIOPATHIC ARTHRITIS
     Dosage: 140 MG/M2, ON DAY 3
     Route: 065

REACTIONS (4)
  - Viraemia [Unknown]
  - Thrombocytopenia [Recovered/Resolved]
  - Neutropenia [Recovered/Resolved]
  - Pneumonia cytomegaloviral [Unknown]
